FAERS Safety Report 20913279 (Version 2)
Quarter: 2022Q2

REPORT INFORMATION
  Report Type: Report from Study
  Country: US (occurrence: US)
  Receive Date: 20220603
  Receipt Date: 20220622
  Transmission Date: 20220721
  Serious: No
  Sender: FDA-Public Use
  Company Number: US-JAZZ-2022-US-013409

PATIENT
  Sex: Female

DRUGS (3)
  1. XYWAV [Suspect]
     Active Substance: CALCIUM OXYBATE\MAGNESIUM OXYBATE\POTASSIUM OXYBATE\SODIUM OXYBATE
     Indication: Hypersomnia
     Dosage: 2.25 GRAM
     Route: 048
  2. XYWAV [Suspect]
     Active Substance: CALCIUM OXYBATE\MAGNESIUM OXYBATE\POTASSIUM OXYBATE\SODIUM OXYBATE
     Dosage: 3 GRAM, BID PER NIGHT
     Route: 048
  3. XYWAV [Suspect]
     Active Substance: CALCIUM OXYBATE\MAGNESIUM OXYBATE\POTASSIUM OXYBATE\SODIUM OXYBATE
     Dosage: 3.5 GRAM, BID
     Route: 048
     Dates: start: 20220324

REACTIONS (14)
  - Lacrimation increased [Unknown]
  - Eye irritation [Unknown]
  - Retching [Unknown]
  - Tinnitus [Unknown]
  - Breath odour [Unknown]
  - Decreased appetite [Unknown]
  - Initial insomnia [Unknown]
  - Feeling abnormal [Unknown]
  - Paraesthesia [Unknown]
  - Nausea [Unknown]
  - Depression [Unknown]
  - Fatigue [Unknown]
  - Dizziness [Unknown]
  - Weight decreased [Unknown]
